FAERS Safety Report 11065779 (Version 1)
Quarter: 2015Q2

REPORT INFORMATION
  Report Type: Spontaneous
  Country: US (occurrence: None)
  Receive Date: 20150423
  Receipt Date: 20150423
  Transmission Date: 20150821
  Serious: Yes (Hospitalization)
  Sender: FDA-Public Use
  Company Number: COM-003115

PATIENT
  Age: 9 Year
  Sex: Female
  Weight: 54.43 kg

DRUGS (1)
  1. CHILDREN^S ACETAMINOPHEN 160MG DYE FREE CHERRY [Suspect]
     Active Substance: ACETAMINOPHEN
     Indication: PYREXIA
     Dosage: 4 TSP
     Route: 048
     Dates: start: 20150105

REACTIONS (1)
  - Hypersensitivity [None]

NARRATIVE: CASE EVENT DATE: 20150105
